FAERS Safety Report 5854226-0 (Version None)
Quarter: 2008Q3

REPORT INFORMATION
  Report Type: 
  Country: None (occurrence: None)
  Receive Date: 20080822
  Receipt Date: 20080812
  Transmission Date: 20090109
  Serious: Yes (Hospitalization, Other)
  Sender: FDA-Public Use
  Company Number: GXBR2008US01644

PATIENT
  Sex: Female
  Weight: 79.9 kg

DRUGS (20)
  1. DICLOFENAC SODIUM D.R. TABLETS USP (NGX) [Suspect]
     Dosage: UNK
  2. DIOVAN [Suspect]
     Dosage: UNK
  3. LASIX [Suspect]
     Dosage: UNK
  4. ETANERCEPT [Suspect]
     Dosage: UNK
     Route: 058
     Dates: start: 20060202, end: 20060815
  5. PANTOPRAZOLE [Concomitant]
     Dosage: UNK
  6. FLUOXETINE [Concomitant]
  7. PREDNISONE TAB [Concomitant]
     Dosage: UNK
  8. ATORVASTATIN [Concomitant]
     Dosage: UNK
  9. CARVEDILOL [Concomitant]
     Dosage: UNK
  10. IRON [Concomitant]
     Dosage: UNK
  11. ALBUTEROL SULFATE [Concomitant]
     Dosage: UNK
  12. IPRATROPIUM BROMIDE [Concomitant]
     Dosage: UNK
  13. WARFARIN SODIUM [Concomitant]
     Dosage: UNK
  14. ERGOCALCIFEROL [Concomitant]
     Dosage: UNK
  15. CALCIUM CARBONATE [Concomitant]
     Dosage: UNK
  16. POTASSIUM CHLORIDE [Concomitant]
     Dosage: UNK
  17. ACETAMINOPHEN AND OXYCODONE HCL [Concomitant]
     Dosage: UNK
  18. NIFEDIPINE [Concomitant]
     Dosage: UNK
  19. TIOTROPIUM [Concomitant]
     Dosage: UNK
  20. EPOGEN [Concomitant]
     Dosage: UNK

REACTIONS (22)
  - ANAEMIA [None]
  - BLOOD CREATININE INCREASED [None]
  - BRONCHITIS [None]
  - CARDIAC FAILURE CONGESTIVE [None]
  - CARDIOMYOPATHY [None]
  - CATARACT [None]
  - CELLULITIS [None]
  - CHRONIC OBSTRUCTIVE PULMONARY DISEASE [None]
  - DEEP VEIN THROMBOSIS [None]
  - DEHYDRATION [None]
  - GROIN PAIN [None]
  - HAEMATURIA [None]
  - HYPERLIPIDAEMIA [None]
  - HYPERTENSION [None]
  - MYOCARDIAL INFARCTION [None]
  - OCCULT BLOOD POSITIVE [None]
  - OEDEMA PERIPHERAL [None]
  - OVARIAN CYST [None]
  - PAIN IN EXTREMITY [None]
  - PNEUMONIA [None]
  - RENAL FAILURE CHRONIC [None]
  - URINARY TRACT INFECTION [None]
